FAERS Safety Report 4777011-X (Version None)
Quarter: 2005Q3

REPORT INFORMATION
  Report Type: 
  Country: None (occurrence: None)
  Receive Date: 20050923
  Receipt Date: 20050823
  Transmission Date: 20060218
  Serious: No
  Sender: FDA-Public Use
  Company Number: FI-GLAXOSMITHKLINE-B0392412A

PATIENT
  Sex: Male

DRUGS (2)
  1. LAMOTRIGINE [Suspect]
     Dates: start: 20041107
  2. TEGRETOL [Concomitant]
     Dosage: 1000MG PER DAY

REACTIONS (1)
  - DRUG EXPOSURE DURING PREGNANCY [None]
